FAERS Safety Report 7069511-7 (Version None)
Quarter: 2010Q4

REPORT INFORMATION
  Report Type: 
  Country: None (occurrence: None)
  Receive Date: 20101028
  Receipt Date: 20100305
  Transmission Date: 20110411
  Serious: No
  Sender: FDA-Public Use
  Company Number: US-WYE-H13162410

PATIENT
  Sex: Male

DRUGS (6)
  1. PROTONIX [Suspect]
     Dosage: UNKNOWN
  2. ALLEGRA [Suspect]
     Dosage: UNKNOWN
  3. ACETYLSALICYLIC ACID SRT [Suspect]
     Dosage: UNKNOWN
  4. SYNTHROID [Suspect]
     Dosage: UNKNOWN
  5. LIPITOR [Suspect]
  6. ACYCLOVIR [Suspect]
     Dosage: UNKNOWN

REACTIONS (1)
  - DYSGEUSIA [None]
